FAERS Safety Report 5204227-0 (Version None)
Quarter: 2007Q1

REPORT INFORMATION
  Report Type: 
  Country: None (occurrence: None)
  Receive Date: 20070110
  Receipt Date: 20060117
  Transmission Date: 20070707
  Serious: No
  Sender: FDA-Public Use
  Company Number: US-BRISTOL-MYERS SQUIBB COMPANY-13248737

PATIENT
  Age: 55 Year
  Sex: Male
  Weight: 79 kg

DRUGS (12)
  1. ABILIFY [Suspect]
     Indication: BIPOLAR DISORDER
     Dosage: INITIAL DOSE 10 MG DAILY, INCREASED TO 10 MG BID X 1 MONTH, REDUCED TO 10 MG DAILY
     Route: 048
  2. BENICAR [Concomitant]
  3. VERAPAMIL [Concomitant]
  4. WELLBUTRIN [Concomitant]
  5. DEPAKOTE [Concomitant]
  6. POTASSIUM ACETATE [Concomitant]
  7. ASPIRIN [Concomitant]
  8. TOPAMAX [Concomitant]
  9. NIZORAL [Concomitant]
  10. KLONOPIN [Concomitant]
  11. MULTI-VITAMIN [Concomitant]
  12. ECHINACEA [Concomitant]

REACTIONS (1)
  - SOMNOLENCE [None]
